FAERS Safety Report 24110970 (Version 1)
Quarter: 2024Q3

REPORT INFORMATION
  Report Type: Spontaneous
  Country: US (occurrence: None)
  Receive Date: 20240717
  Receipt Date: 20240717
  Transmission Date: 20241017
  Serious: Yes (Hospitalization, Disabling)
  Sender: Public
  Company Number: None

PATIENT
  Age: 49 Year
  Sex: Female
  Weight: 49.5 kg

DRUGS (2)
  1. CIPROFLOXACIN [Suspect]
     Active Substance: CIPROFLOXACIN
     Indication: Bladder pain
     Dosage: 1 TABLET TWICE A DAY ORAL?
     Route: 048
     Dates: start: 20231215, end: 20231216
  2. CIPRO [Concomitant]
     Active Substance: CIPROFLOXACIN HYDROCHLORIDE

REACTIONS (25)
  - Palpitations [None]
  - Chest pain [None]
  - Hypertension [None]
  - Gastrointestinal disorder [None]
  - Malabsorption [None]
  - Weight decreased [None]
  - Rash [None]
  - Hypovitaminosis [None]
  - Spider vein [None]
  - Nervous system disorder [None]
  - Dysphagia [None]
  - Food allergy [None]
  - Sleep disorder [None]
  - Alopecia [None]
  - Arthralgia [None]
  - Paraesthesia [None]
  - Inflammation [None]
  - Tendon pain [None]
  - Paraesthesia [None]
  - Muscular weakness [None]
  - Dry mouth [None]
  - Dry throat [None]
  - Dry eye [None]
  - Feeling cold [None]
  - Feeling hot [None]

NARRATIVE: CASE EVENT DATE: 20231230
